FAERS Safety Report 4636544-7 (Version None)
Quarter: 2005Q2

REPORT INFORMATION
  Report Type: 
  Country: None (occurrence: None)
  Receive Date: 20050415
  Receipt Date: 20050404
  Transmission Date: 20051028
  Serious: Yes (Other)
  Sender: FDA-Public Use
  Company Number: TR-GLAXOSMITHKLINE-B0377434A

PATIENT

DRUGS (2)
  1. VINORELBINE TARTRATE [Suspect]
     Indication: NON-SMALL CELL LUNG CANCER
     Dosage: 12MGM2 WEEKLY
     Route: 065
  2. RADIOTHERAPY [Suspect]
     Indication: NON-SMALL CELL LUNG CANCER
     Route: 065

REACTIONS (3)
  - BONE MARROW DEPRESSION [None]
  - DYSPHAGIA [None]
  - NEUROPATHY PERIPHERAL [None]
